FAERS Safety Report 22397545 (Version 2)
Quarter: 2023Q2

REPORT INFORMATION
  Report Type: Report from Study
  Country: TW (occurrence: TW)
  Receive Date: 20230602
  Receipt Date: 20230610
  Transmission Date: 20230721
  Serious: Yes (Disabling, Other)
  Sender: FDA-Public Use
  Company Number: TW-TAKEDA-2022TUS034845

PATIENT
  Age: 51 Year
  Sex: Female

DRUGS (1)
  1. VEDOLIZUMAB [Suspect]
     Active Substance: VEDOLIZUMAB
     Indication: Colitis ulcerative
     Dosage: 300 MILLIGRAM
     Route: 042
     Dates: start: 20210506

REACTIONS (8)
  - Eye pain [Recovering/Resolving]
  - Eye swelling [Recovering/Resolving]
  - Ocular hyperaemia [Recovering/Resolving]
  - Visual acuity reduced [Recovering/Resolving]
  - Liver abscess [Recovering/Resolving]
  - Iris adhesions [Recovering/Resolving]
  - Hepatitis B [Recovering/Resolving]
  - COVID-19 [Recovered/Resolved]

NARRATIVE: CASE EVENT DATE: 20220520
